FAERS Safety Report 12579586 (Version 2)
Quarter: 2016Q4

REPORT INFORMATION
  Report Type: Spontaneous
  Country: JP (occurrence: JP)
  Receive Date: 20160721
  Receipt Date: 20161220
  Transmission Date: 20170207
  Serious: Yes (Other)
  Sender: FDA-Public Use
  Company Number: JP-PFIZER INC-2016340704

PATIENT

DRUGS (1)
  1. SUTENT [Suspect]
     Active Substance: SUNITINIB MALATE
     Indication: METASTATIC RENAL CELL CARCINOMA
     Dosage: 25 MG, DAILY (5-DAYS-ON AND 5-DAYS-OFF)
     Route: 048

REACTIONS (4)
  - Nephrogenic anaemia [Recovering/Resolving]
  - Haematemesis [Recovering/Resolving]
  - Bone marrow failure [Unknown]
  - Gastrooesophageal reflux disease [Unknown]
